FAERS Safety Report 23697890 (Version 1)
Quarter: 2024Q2

REPORT INFORMATION
  Report Type: Spontaneous
  Country: CN (occurrence: CN)
  Receive Date: 20240402
  Receipt Date: 20240402
  Transmission Date: 20240716
  Serious: Yes (Other)
  Sender: FDA-Public Use
  Company Number: CN-PFIZER INC-PV202400042652

PATIENT
  Age: 5 Year
  Sex: Female

DRUGS (1)
  1. AZITHROMYCIN [Suspect]
     Active Substance: AZITHROMYCIN
     Indication: Pneumonia
     Dosage: 2 DF, 1X/DAY
     Route: 048
     Dates: start: 20240322, end: 20240324

REACTIONS (2)
  - Tinnitus [Recovering/Resolving]
  - Hearing disability [Recovering/Resolving]

NARRATIVE: CASE EVENT DATE: 20240324
